FAERS Safety Report 5176935-1 (Version None)
Quarter: 2006Q4

REPORT INFORMATION
  Report Type: 
  Country: None (occurrence: None)
  Receive Date: 20061207
  Receipt Date: 20061129
  Transmission Date: 20070319
  Serious: Yes (Life-Threatening, Other)
  Sender: FDA-Public Use
  Company Number: 225851

PATIENT
  Age: 17 Year
  Sex: Male
  Weight: 70.3 kg

DRUGS (2)
  1. NUTROPIN AQ [Suspect]
     Indication: GROWTH HORMONE DEFICIENCY
     Dosage: 0.44 MG/K/W, QD, SUBCUTANEOUS
     Route: 058
     Dates: start: 20020909, end: 20060510
  2. PROVENTIL (ALBUTEROL/ALBUTEROL SULFATE) [Concomitant]

REACTIONS (2)
  - MASS [None]
  - SARCOMA [None]
